FAERS Safety Report 8116668-2 (Version None)
Quarter: 2012Q1

REPORT INFORMATION
  Report Type: 
  Country: None (occurrence: None)
  Receive Date: 20120206
  Receipt Date: 20120125
  Transmission Date: 20120608
  Serious: Yes (Hospitalization, Other)
  Sender: FDA-Public Use
  Company Number: PHEH2011US05130

PATIENT
  Sex: Female

DRUGS (6)
  1. HYDROXYUREA [Concomitant]
     Dosage: 500 MG, DAILY
     Route: 048
  2. EXJADE [Suspect]
     Dosage: 2500 MG, DAILY
     Route: 048
  3. EXJADE [Suspect]
     Indication: SICKLE CELL ANAEMIA
     Dosage: 1250 MG, QD
     Route: 048
  4. DILAUDID [Concomitant]
     Dosage: 4 MG, Q8H
     Route: 048
  5. FOLIC ACID [Concomitant]
     Dosage: 1 MG, DAILY
     Route: 048
  6. DILAUDID [Concomitant]
     Dosage: 2 MG, Q3H
     Route: 042

REACTIONS (13)
  - MUSCULOSKELETAL CHEST PAIN [None]
  - NAUSEA [None]
  - BACK PAIN [None]
  - LEUKOCYTOSIS [None]
  - SICKLE CELL ANAEMIA WITH CRISIS [None]
  - PAIN IN EXTREMITY [None]
  - ABDOMINAL PAIN [None]
  - SWELLING [None]
  - FALL [None]
  - MEDICAL DEVICE COMPLICATION [None]
  - PAIN [None]
  - RHINORRHOEA [None]
  - THROMBOSIS IN DEVICE [None]
